FAERS Safety Report 12158116 (Version 1)
Quarter: 2016Q1

REPORT INFORMATION
  Report Type: Spontaneous
  Country: US (occurrence: US)
  Receive Date: 20160308
  Receipt Date: 20160308
  Transmission Date: 20160526
  Serious: No
  Sender: FDA-Public Use
  Company Number: US-JNJFOC-20141205650

PATIENT
  Sex: Female
  Weight: 54 kg

DRUGS (6)
  1. IMBRUVICA [Suspect]
     Active Substance: IBRUTINIB
     Indication: CHRONIC LYMPHOCYTIC LEUKAEMIA
     Route: 048
     Dates: start: 201401, end: 201410
  2. BENADRYL [Concomitant]
     Active Substance: DIPHENHYDRAMINE HYDROCHLORIDE
     Dosage: ONE, QHS
  3. IMBRUVICA [Suspect]
     Active Substance: IBRUTINIB
     Indication: CHRONIC LYMPHOCYTIC LEUKAEMIA
     Dosage: 3 CAPSULES (TOTAL DOSE 420 MG)
     Route: 048
     Dates: start: 2014
  4. IMBRUVICA [Suspect]
     Active Substance: IBRUTINIB
     Indication: CHRONIC LYMPHOCYTIC LEUKAEMIA
     Dosage: 2 CAPSULES (TOTAL DOSE 280 MG)
     Route: 048
     Dates: start: 201412
  5. LISINOPRIL. [Concomitant]
     Active Substance: LISINOPRIL
     Dosage: ONE, QHS
  6. IMBRUVICA [Suspect]
     Active Substance: IBRUTINIB
     Indication: CHRONIC LYMPHOCYTIC LEUKAEMIA
     Dosage: 2 CAPSULES (TOTAL DOSE 280 MG)
     Route: 048
     Dates: start: 201410

REACTIONS (8)
  - Dysuria [Not Recovered/Not Resolved]
  - Rhinorrhoea [Not Recovered/Not Resolved]
  - Rash pruritic [Recovering/Resolving]
  - Productive cough [Recovered/Resolved]
  - Vaginal discharge [Not Recovered/Not Resolved]
  - Nasopharyngitis [Recovered/Resolved]
  - Bronchitis [Not Recovered/Not Resolved]
  - Rash erythematous [Unknown]

NARRATIVE: CASE EVENT DATE: 2014
